FAERS Safety Report 6606518-5 (Version None)
Quarter: 2010Q1

REPORT INFORMATION
  Report Type: 
  Country: None (occurrence: None)
  Receive Date: 20100226
  Receipt Date: 20090311
  Transmission Date: 20100710
  Serious: Yes (Life-Threatening, Hospitalization, Other)
  Sender: FDA-Public Use
  Company Number: FR-SANOFI-AVENTIS-F01200801254

PATIENT
  Age: 76 Year
  Sex: Male

DRUGS (14)
  1. LEUPRORELIN ACETATE [Suspect]
     Indication: PROSTATE CANCER
     Route: 058
     Dates: start: 20080425, end: 20080425
  2. LEUPRORELIN ACETATE [Suspect]
     Route: 058
     Dates: start: 20070518, end: 20070518
  3. LEUPRORELIN ACETATE [Suspect]
     Route: 058
     Dates: start: 20080725, end: 20080725
  4. BICALUTAMIDE [Suspect]
     Indication: PROSTATE CANCER
     Route: 048
     Dates: start: 20080425, end: 20080524
  5. PINDOLOL [Concomitant]
     Indication: ANGINA PECTORIS
     Dates: start: 20080207
  6. ACETYLSALICYLATE DE LYSINE [Concomitant]
     Dates: start: 20051201, end: 20080206
  7. PRAVASTATIN SODIUM [Concomitant]
     Dates: start: 19980201
  8. PLAVIX [Concomitant]
     Dates: start: 20051201
  9. INIPOMP [Concomitant]
     Indication: GASTRITIS
     Dates: start: 20020101
  10. ALLOPURINOL ^1A FARMA^ [Concomitant]
     Indication: GOUT
     Dates: start: 20070201, end: 20080330
  11. KARDEGIC /FRA/ [Concomitant]
     Indication: ANGINA PECTORIS
     Route: 048
     Dates: start: 20051201, end: 20080206
  12. FLURBIPROFEN [Concomitant]
     Indication: ANGINA PECTORIS
     Dates: start: 20080629
  13. AMLODIPINE BESYLATE [Concomitant]
     Dates: start: 19980201
  14. PAROXETINE HYDROCHLORIDE [Concomitant]
     Indication: DEPRESSION
     Dates: start: 20050101

REACTIONS (2)
  - MALIGNANT NEOPLASM PROGRESSION [None]
  - RENAL FAILURE ACUTE [None]
